FAERS Safety Report 18112854 (Version 1)
Quarter: 2020Q3

REPORT INFORMATION
  Report Type: Spontaneous
  Country: US (occurrence: US)
  Receive Date: 20200804
  Receipt Date: 20200804
  Transmission Date: 20201103
  Serious: No
  Sender: FDA-Public Use
  Company Number: None

PATIENT
  Age: 71 Year
  Sex: Female
  Weight: 79.8 kg

DRUGS (4)
  1. UREA 30G POWDER [Concomitant]
     Dates: start: 20200609, end: 20200612
  2. BUPROPION. [Suspect]
     Active Substance: BUPROPION
     Indication: DEPRESSION
     Dates: start: 20190912
  3. PANTOPRAZOLE [Suspect]
     Active Substance: PANTOPRAZOLE
     Indication: GASTROOESOPHAGEAL REFLUX DISEASE
     Dates: start: 20200521, end: 20200611
  4. TOLVAPTAN 7.5MG [Concomitant]
     Dates: start: 20200612, end: 20200612

REACTIONS (4)
  - Inappropriate antidiuretic hormone secretion [None]
  - Therapy cessation [None]
  - Gait disturbance [None]
  - Fall [None]

NARRATIVE: CASE EVENT DATE: 20200603
